FAERS Safety Report 7317349-5 (Version None)
Quarter: 2011Q1

REPORT INFORMATION
  Report Type: 
  Country: None (occurrence: None)
  Receive Date: 20110226
  Receipt Date: 20101027
  Transmission Date: 20110831
  Serious: No
  Sender: FDA-Public Use
  Company Number: US-ALLERGAN-1013841US

PATIENT
  Age: 38 Year
  Sex: Female

DRUGS (1)
  1. BOTOX COSMETIC [Suspect]
     Indication: SKIN WRINKLING
     Dosage: UNK
     Route: 030
     Dates: start: 20101004, end: 20101004

REACTIONS (3)
  - BALANCE DISORDER [None]
  - RASH VESICULAR [None]
  - GAIT DISTURBANCE [None]
